FAERS Safety Report 7131351-8 (Version None)
Quarter: 2010Q4

REPORT INFORMATION
  Report Type: 
  Country: None (occurrence: None)
  Receive Date: 20101201
  Receipt Date: 20101122
  Transmission Date: 20110411
  Serious: Yes (Hospitalization)
  Sender: FDA-Public Use
  Company Number: US-ASTRAZENECA-2010SE55655

PATIENT
  Age: 85 Year
  Sex: Male

DRUGS (17)
  1. SYMBICORT [Suspect]
     Route: 055
     Dates: start: 20100607
  2. RAZADYNE [Suspect]
     Route: 065
     Dates: start: 20100704
  3. APIXABAN [Suspect]
     Indication: THROMBOSIS PROPHYLAXIS
     Route: 048
     Dates: start: 20100528, end: 20100605
  4. APIXABAN [Suspect]
     Route: 048
     Dates: start: 20100607
  5. PLACEBO [Suspect]
     Indication: THROMBOSIS PROPHYLAXIS
     Route: 048
     Dates: start: 20100528, end: 20100605
  6. PLACEBO [Suspect]
     Route: 048
     Dates: start: 20100607
  7. ASPIRIN [Concomitant]
  8. CLOPIDOGREL BISULFATE [Concomitant]
  9. LIPITOR [Concomitant]
  10. RAMIPRIL [Concomitant]
  11. SOTALOL [Concomitant]
  12. PANTOPRAZOLE [Concomitant]
     Dates: start: 20100607
  13. VESICARE [Concomitant]
     Dates: start: 20100607
  14. ALTACE [Concomitant]
     Dates: start: 20100704
  15. ACYCLOVIR SODIUM [Concomitant]
     Dates: start: 20100704
  16. MEGACE [Concomitant]
     Dates: start: 20100718
  17. RANEXA [Concomitant]
     Dates: start: 20100830

REACTIONS (3)
  - HICCUPS [None]
  - OROPHARYNGEAL PAIN [None]
  - TREMOR [None]
